FAERS Safety Report 7558843-1 (Version None)
Quarter: 2011Q2

REPORT INFORMATION
  Report Type: 
  Country: None (occurrence: None)
  Receive Date: 20110613
  Receipt Date: 20110527
  Transmission Date: 20111010
  Serious: Yes (Hospitalization, Other)
  Sender: FDA-Public Use
  Company Number: AUR-APL-2011-02107

PATIENT
  Age: 31 Year
  Sex: Female
  Weight: 55 kg

DRUGS (5)
  1. MIRTAZAPINE [Suspect]
     Indication: DEPRESSION
     Dosage: 15MG-DAILY-ORAL
     Route: 048
     Dates: start: 20091201, end: 20100612
  2. AUGMENTAN (AMOXICILLIN/CLAVUKANATE POTASSIUM) [Concomitant]
  3. MIRTAZAPINE [Suspect]
     Indication: DEPRESSION
     Dosage: 30MG-DAILY-ORAL
     Route: 048
     Dates: start: 20091001, end: 20091201
  4. FOLIO FORTE (FOLIC ACID) [Concomitant]
  5. ESCITALOPRAM [Suspect]
     Indication: DEPRESSION
     Dosage: 10MG-DAILY-ORAL
     Route: 048
     Dates: start: 20091001, end: 20091201

REACTIONS (6)
  - PRE-ECLAMPSIA [None]
  - PROTEINURIA [None]
  - CAESAREAN SECTION [None]
  - URINARY TRACT INFECTION [None]
  - DRUG EXPOSURE DURING PREGNANCY [None]
  - OEDEMA [None]
